FAERS Safety Report 4442176-6 (Version None)
Quarter: 2004Q3

REPORT INFORMATION
  Report Type: 
  Country: None (occurrence: None)
  Receive Date: 20040903
  Receipt Date: 20040724
  Transmission Date: 20050211
  Serious: Yes (Other)
  Sender: FDA-Public Use
  Company Number: 2004UW15731

PATIENT
  Age: 53 Year
  Sex: Female

DRUGS (2)
  1. CRESTOR [Suspect]
     Dates: start: 20040423
  2. LEVOXYL [Concomitant]

REACTIONS (2)
  - HOT FLUSH [None]
  - SENSORY DISTURBANCE [None]
